FAERS Safety Report 6058014-4 (Version None)
Quarter: 2009Q1

REPORT INFORMATION
  Report Type: 
  Country: None (occurrence: None)
  Receive Date: 20090127
  Receipt Date: 20090121
  Transmission Date: 20090719
  Serious: Yes (Other)
  Sender: FDA-Public Use
  Company Number: SPV1-2008-02606

PATIENT
  Age: 59 Year
  Sex: Male
  Weight: 79.4 kg

DRUGS (7)
  1. FOSRENOL [Suspect]
     Indication: HYPERPHOSPHATAEMIA
     Dosage: 1000 MG, WITH MEALS, ORAL
     Route: 048
     Dates: start: 20080101
  2. FOSRENOL [Suspect]
     Indication: HYPERPHOSPHATAEMIA
     Dosage: 1000 MG, WITH MEALS, ORAL
     Route: 048
     Dates: start: 20090105
  3. DIATEX (DIAZEPAM) [Concomitant]
  4. CLONIDINE [Concomitant]
  5. ASPIRIN [Concomitant]
  6. DIMAR (LEFLUNOMIDE) [Concomitant]
  7. IMDUR [Concomitant]

REACTIONS (1)
  - BILE DUCT STONE [None]
